FAERS Safety Report 8136688-1 (Version None)
Quarter: 2012Q1

REPORT INFORMATION
  Report Type: 
  Country: None (occurrence: None)
  Receive Date: 20120214
  Receipt Date: 20120209
  Transmission Date: 20120608
  Serious: Yes (Death)
  Sender: FDA-Public Use
  Company Number: US-VERTEX PHARMACEUTICALS INC.-AE-2012-001582

PATIENT
  Sex: Female

DRUGS (15)
  1. ASCORBIC ACID [Concomitant]
  2. STEROID [Concomitant]
  3. INCIVEK [Suspect]
     Indication: HEPATITIS C
     Route: 048
  4. PEGASYS [Concomitant]
     Indication: HEPATITIS C
     Route: 058
     Dates: start: 20111112
  5. RANITIDINE [Concomitant]
  6. LORAZEPAM [Concomitant]
  7. RIBAVIRIN [Concomitant]
     Indication: HEPATITIS C
     Route: 048
     Dates: start: 20111112
  8. MILK THISTLE [Concomitant]
  9. LEVOTHYROXINE SODIUM [Concomitant]
  10. OXYCODONE HCL [Concomitant]
  11. MORPHINE [Concomitant]
  12. FOLIC ACID [Concomitant]
  13. VITAMIN B COMPLEX CAP [Concomitant]
  14. GABAPENTIN [Concomitant]
  15. VITAMIN E [Concomitant]

REACTIONS (1)
  - SUDDEN CARDIAC DEATH [None]
